FAERS Safety Report 21090260 (Version 1)
Quarter: 2022Q3

REPORT INFORMATION
  Report Type: Spontaneous
  Country: US (occurrence: US)
  Receive Date: 20220715
  Receipt Date: 20220715
  Transmission Date: 20221026
  Serious: Yes (Hospitalization, Other)
  Sender: FDA-Public Use
  Company Number: US-BRISTOL-MYERS SQUIBB COMPANY-2022-072152

PATIENT
  Age: 62 Year
  Sex: Male

DRUGS (2)
  1. REVLIMID [Suspect]
     Active Substance: LENALIDOMIDE
     Indication: Follicular lymphoma
     Dosage: DOSE : 20MG;     FREQ : ^21 DAYS OUT OF 28^
     Route: 048
     Dates: start: 20220421
  2. REVLIMID [Suspect]
     Active Substance: LENALIDOMIDE
     Dosage: DOSE : 20MG;     FREQ : ^21 DAYS OUT OF 28^
     Route: 065
     Dates: start: 20220619

REACTIONS (2)
  - Cerebrovascular accident [Unknown]
  - Adverse event [Unknown]

NARRATIVE: CASE EVENT DATE: 20220623
